FAERS Safety Report 9641992 (Version 1)
Quarter: 2013Q4

REPORT INFORMATION
  Report Type: Spontaneous
  Country: US (occurrence: None)
  Receive Date: 20131022
  Receipt Date: 20131022
  Transmission Date: 20140711
  Serious: Yes (Hospitalization, Other)
  Sender: FDA-Public Use
  Company Number: AUR-APL-2013-08703

PATIENT
  Age: 61 Year
  Sex: Female

DRUGS (1)
  1. OXYCODONE [Suspect]
     Indication: PRODUCT USED FOR UNKNOWN INDICATION
     Route: 048

REACTIONS (23)
  - Respiratory failure [None]
  - Overdose [None]
  - Depressed level of consciousness [None]
  - No therapeutic response [None]
  - Right ventricular failure [None]
  - Aspiration [None]
  - Apnoea [None]
  - Unresponsive to stimuli [None]
  - Metabolic acidosis [None]
  - Respiratory acidosis [None]
  - Shock [None]
  - Renal failure acute [None]
  - Hepatic failure [None]
  - Bundle branch block right [None]
  - Blood creatine phosphokinase increased [None]
  - Blood creatine phosphokinase MB increased [None]
  - Troponin I increased [None]
  - Platelet count decreased [None]
  - Blood potassium increased [None]
  - International normalised ratio increased [None]
  - Electrocardiogram T wave inversion [None]
  - Stress cardiomyopathy [None]
  - Vasoconstriction [None]
